FAERS Safety Report 18601553 (Version 1)
Quarter: 2020Q4

REPORT INFORMATION
  Report Type: Spontaneous
  Country: US (occurrence: US)
  Receive Date: 20201210
  Receipt Date: 20201210
  Transmission Date: 20210114
  Serious: No
  Sender: FDA-Public Use
  Company Number: US-PFIZER INC-2020486162

PATIENT
  Age: 64 Year
  Sex: Male

DRUGS (2)
  1. INLYTA [Suspect]
     Active Substance: AXITINIB
     Dosage: 5 MG, 2X/DAY 5 BID (TWICE A DAY)
     Dates: start: 202008
  2. INLYTA [Suspect]
     Active Substance: AXITINIB
     Dosage: 5 MG, 2X/DAY 5 BID (TWICE A DAY)
     Dates: end: 20200527

REACTIONS (3)
  - Pleural effusion [Unknown]
  - Neoplasm progression [Unknown]
  - Infection [Unknown]
